FAERS Safety Report 10269290 (Version 3)
Quarter: 2015Q4

REPORT INFORMATION
  Report Type: Report from Study
  Country: US (occurrence: US)
  Receive Date: 20140701
  Receipt Date: 20151204
  Transmission Date: 20160304
  Serious: Yes (Hospitalization, Other)
  Sender: FDA-Public Use
  Company Number: US-AMGEN INC.-USASP2014048220

PATIENT
  Age: 67 Year
  Sex: Male

DRUGS (2)
  1. ENBREL [Suspect]
     Active Substance: ETANERCEPT
     Indication: RHEUMATOID ARTHRITIS
     Dosage: 50 MG, QWK
     Route: 065
     Dates: start: 2005
  2. HUMIRA [Suspect]
     Active Substance: ADALIMUMAB
     Indication: RHEUMATOID ARTHRITIS
     Dosage: UNK
     Route: 065
     Dates: start: 2010, end: 2010

REACTIONS (10)
  - Hypercholesterolaemia [Unknown]
  - Hypertension [Unknown]
  - Malaise [Unknown]
  - Pericardial effusion [Recovered/Resolved]
  - Drug ineffective [Unknown]
  - Joint destruction [Not Recovered/Not Resolved]
  - Pleural effusion [Unknown]
  - Knee arthroplasty [Recovered/Resolved]
  - Lung disorder [Unknown]
  - Hip arthroplasty [Recovered/Resolved]

NARRATIVE: CASE EVENT DATE: 2006
